FAERS Safety Report 5637949-8 (Version None)
Quarter: 2008Q1

REPORT INFORMATION
  Report Type: 
  Country: None (occurrence: None)
  Receive Date: 20080222
  Receipt Date: 20080222
  Transmission Date: 20080703
  Serious: Yes (Hospitalization)
  Sender: FDA-Public Use
  Company Number: None

PATIENT
  Sex: Male
  Weight: 84 kg

DRUGS (3)
  1. REVLIMID [Suspect]
     Indication: MULTIPLE MYELOMA
     Dosage: PO ONCE A DAY 2-5 MG
     Route: 048
  2. DECADRON [Suspect]
     Dosage: 4 MG PILLS PO QD
     Route: 048
  3. BIAXIN [Suspect]

REACTIONS (1)
  - INFLUENZA [None]
